FAERS Safety Report 12094169 (Version 5)
Quarter: 2017Q2

REPORT INFORMATION
  Report Type: Spontaneous
  Country: US (occurrence: US)
  Receive Date: 20160219
  Receipt Date: 20170628
  Transmission Date: 20170829
  Serious: Yes (Hospitalization)
  Sender: FDA-Public Use
  Company Number: US-ACTELION-A-US2016-131483

PATIENT
  Age: 2 Year
  Sex: Male

DRUGS (16)
  1. FUROSEMIDE. [Concomitant]
     Active Substance: FUROSEMIDE
  2. LANSOPRAZOLE. [Concomitant]
     Active Substance: LANSOPRAZOLE
     Dosage: 15 MG, BID
  3. MIRALAX [Concomitant]
     Active Substance: POLYETHYLENE GLYCOL 3350
  4. SILDENAFIL. [Concomitant]
     Active Substance: SILDENAFIL
     Dosage: 10 MG, QID
  5. CHLOROTHIAZIDE. [Concomitant]
     Active Substance: CHLOROTHIAZIDE
  6. REVATIO [Concomitant]
     Active Substance: SILDENAFIL CITRATE
     Dosage: 1 ML, Q6HRS
     Route: 048
     Dates: start: 20161228
  7. BUDESONIDE. [Concomitant]
     Active Substance: BUDESONIDE
  8. ORAPRED [Concomitant]
     Active Substance: PREDNISOLONE SODIUM PHOSPHATE
     Dosage: 15 MG, BID
     Dates: start: 20170530
  9. TRACLEER [Suspect]
     Active Substance: BOSENTAN
     Indication: PULMONARY ARTERIAL HYPERTENSION
     Dosage: 15.625 MG, BID
     Route: 048
     Dates: start: 20140823
  10. TOBRAMYCIN. [Concomitant]
     Active Substance: TOBRAMYCIN
  11. SPIRONOLACTONE. [Concomitant]
     Active Substance: SPIRONOLACTONE
     Dosage: 15 MG, BID
  12. CHOLECALCIFEROL [Concomitant]
     Active Substance: CHOLECALCIFEROL
  13. HYOSCYAMINE. [Concomitant]
     Active Substance: HYOSCYAMINE
  14. LASIX [Concomitant]
     Active Substance: FUROSEMIDE
     Dosage: 10 MG, BID
  15. LEVALBUTEROL. [Concomitant]
     Active Substance: LEVALBUTEROL
  16. POTASSIUM CHLORIDE. [Concomitant]
     Active Substance: POTASSIUM CHLORIDE

REACTIONS (4)
  - Tracheostomy malfunction [Recovered/Resolved]
  - Respiratory distress [Recovered/Resolved]
  - Pneumonia [Recovered/Resolved]
  - Dyspnoea [Recovered/Resolved]

NARRATIVE: CASE EVENT DATE: 20160203
